FAERS Safety Report 18832002 (Version 2)
Quarter: 2021Q1

REPORT INFORMATION
  Report Type: Spontaneous
  Country: US (occurrence: US)
  Receive Date: 20210203
  Receipt Date: 20210225
  Transmission Date: 20210419
  Serious: Yes (Hospitalization)
  Sender: FDA-Public Use
  Company Number: US-BIOCODEX SA-2021000027

PATIENT

DRUGS (4)
  1. EPIDIOLEX [Concomitant]
     Active Substance: CANNABIDIOL
  2. ONFI [Concomitant]
     Active Substance: CLOBAZAM
  3. DIACOMIT [Suspect]
     Active Substance: STIRIPENTOL
     Indication: SEVERE MYOCLONIC EPILEPSY OF INFANCY
     Dosage: 250MG THREE TIMES DAILY
     Route: 065
     Dates: start: 20201125, end: 20210101
  4. LAMICTAL [Concomitant]
     Active Substance: LAMOTRIGINE

REACTIONS (2)
  - Seizure [Unknown]
  - Mobility decreased [Unknown]
